FAERS Safety Report 4432700-1 (Version None)
Quarter: 2004Q3

REPORT INFORMATION
  Report Type: 
  Country: None (occurrence: None)
  Receive Date: 20040820
  Receipt Date: 20040728
  Transmission Date: 20050211
  Serious: Yes (Hospitalization, Other)
  Sender: FDA-Public Use
  Company Number: USA040669829

PATIENT
  Age: 79 Year
  Sex: Female

DRUGS (12)
  1. FORTEO [Suspect]
     Indication: OSTEOPOROSIS
  2. ALPRAZOLAM [Concomitant]
  3. TEMAZEPAM [Concomitant]
  4. ACETYLSALICYLIC ACID SRT [Concomitant]
  5. FUROSEMIDER (ATORVASTATIN) [Concomitant]
  6. OXYCODONE HCL [Concomitant]
  7. PLAVIX [Concomitant]
  8. SOTALOL HCL [Concomitant]
  9. PROTONIX [Concomitant]
  10. DETROL LA (TOLTERODINE L-TARTRATE) [Concomitant]
  11. PREDNISONE [Concomitant]
  12. MIRALAX [Concomitant]

REACTIONS (5)
  - ARRHYTHMIA [None]
  - CELLULITIS [None]
  - PHARMACEUTICAL PRODUCT COMPLAINT [None]
  - PNEUMONIA [None]
  - SALIVARY GLAND DISORDER [None]
